FAERS Safety Report 16792707 (Version 1)
Quarter: 2019Q3

REPORT INFORMATION
  Report Type: Spontaneous
  Country: US (occurrence: US)
  Receive Date: 20190910
  Receipt Date: 20190910
  Transmission Date: 20191005
  Serious: No
  Sender: FDA-Public Use
  Company Number: US-AMAG PHARMACEUTICALS, INC.-AMAG201904506

PATIENT
  Age: 66 Year
  Sex: Female
  Weight: 51.76 kg

DRUGS (3)
  1. INTRAROSA [Suspect]
     Active Substance: PRASTERONE
     Indication: VULVOVAGINAL PAIN
  2. MAGNESIUM [Concomitant]
     Active Substance: MAGNESIUM
     Indication: MINERAL SUPPLEMENTATION
  3. INTRAROSA [Suspect]
     Active Substance: PRASTERONE
     Indication: VULVOVAGINAL DRYNESS
     Route: 067
     Dates: start: 20190826

REACTIONS (3)
  - Feeling hot [Not Recovered/Not Resolved]
  - Off label use [Unknown]
  - Insomnia [Not Recovered/Not Resolved]

NARRATIVE: CASE EVENT DATE: 20190826
